FAERS Safety Report 7644600-4 (Version None)
Quarter: 2011Q3

REPORT INFORMATION
  Report Type: 
  Country: None (occurrence: None)
  Receive Date: 20110729
  Receipt Date: 20110720
  Transmission Date: 20111222
  Serious: Yes (Hospitalization)
  Sender: FDA-Public Use
  Company Number: US-PFIZER INC-2011117684

PATIENT
  Sex: Female
  Weight: 46.7 kg

DRUGS (22)
  1. METHADONE [Concomitant]
     Indication: PAIN
     Dosage: UNK
     Dates: start: 20091228
  2. LORAZEPAM [Concomitant]
     Indication: ANXIETY
     Dosage: 1 MG, AS NEEDED
     Route: 048
     Dates: start: 20110126
  3. PRILOSEC [Concomitant]
     Indication: GASTROOESOPHAGEAL REFLUX DISEASE
     Dosage: UNK
     Route: 048
     Dates: start: 20110329
  4. COMPAZINE [Concomitant]
     Indication: NAUSEA
     Dosage: 1 DF, AS NEEDED
     Route: 048
     Dates: start: 20090310
  5. LYRICA [Concomitant]
     Indication: NEURALGIA
     Dosage: 50 MG, 2X/DAY
     Route: 048
     Dates: start: 20080407
  6. LYRICA [Concomitant]
     Dosage: UNK
     Dates: start: 20091109
  7. OXYCODONE [Concomitant]
     Dosage: UNK
     Dates: start: 20110510
  8. DOCUSATE SODIUM [Concomitant]
     Dosage: UNK
     Dates: start: 20110326
  9. ACETAMINOPHEN [Concomitant]
  10. CP-751,871 [Suspect]
     Indication: TONGUE NEOPLASM MALIGNANT STAGE UNSPECIFIED
     Dosage: 998 MG ON  DAY 1 OF EACH 3-WEEK CYCLE, WITH A LOADING DOSE ON DAY 2 OF CYCLE 1 ONLY
     Route: 042
     Dates: start: 20110125, end: 20110510
  11. METHADONE [Concomitant]
     Dosage: 10 MG, 2X/DAY
     Route: 048
     Dates: start: 20101116
  12. MOBIC [Concomitant]
     Dosage: 7.5
     Dates: start: 20091109
  13. SENNA [Concomitant]
     Dosage: 8.6/50 MG
  14. PEGVISOMANT [Suspect]
     Indication: TONGUE NEOPLASM MALIGNANT STAGE UNSPECIFIED
     Dosage: 20 MG, DAILY
     Route: 058
     Dates: start: 20110208, end: 20110528
  15. CYMBALTA [Concomitant]
     Indication: ANXIETY
     Dosage: UNK
     Dates: start: 20091109
  16. COMPAZINE [Concomitant]
     Indication: VOMITING
  17. LORAZEPAM [Concomitant]
     Dosage: UNK
     Dates: start: 20110329
  18. CALCIUM WITH VITAMIN D [Concomitant]
     Dosage: UNK
     Dates: start: 20110326
  19. DIFLUCAN [Concomitant]
  20. CYMBALTA [Concomitant]
     Indication: DEPRESSION
     Dosage: 60 MG (1 TABLET), 2X/DAY
     Route: 048
     Dates: start: 20090510
  21. VITAMIN B COMPLEX CAP [Concomitant]
  22. PROCHLORPERAZINE MALEATE [Concomitant]
     Dosage: UNK
     Dates: start: 20110326

REACTIONS (3)
  - EMPYEMA [None]
  - DEHYDRATION [None]
  - PNEUMONITIS [None]
